FAERS Safety Report 11690086 (Version 1)
Quarter: 2015Q4

REPORT INFORMATION
  Report Type: Spontaneous
  Country: US (occurrence: None)
  Receive Date: 20151030
  Receipt Date: 20151030
  Transmission Date: 20160304
  Serious: No
  Sender: FDA-Public Use
  Company Number: None

PATIENT
  Age: 9 Month
  Sex: Female

DRUGS (1)
  1. TOBRAMYCIN 300MG/5ML ACORN [Suspect]
     Active Substance: TOBRAMYCIN
     Indication: CYSTIC FIBROSIS
     Dosage: 300MG/5ML  BID  ORAL
     Route: 048
     Dates: start: 20151022

REACTIONS (1)
  - Lung infection [None]

NARRATIVE: CASE EVENT DATE: 20151027
